FAERS Safety Report 6150001-0 (Version None)
Quarter: 2009Q2

REPORT INFORMATION
  Report Type: 
  Country: None (occurrence: None)
  Receive Date: 20090407
  Receipt Date: 20090407
  Transmission Date: 20091009
  Serious: Yes (Life-Threatening)
  Sender: FDA-Public Use
  Company Number: None

PATIENT
  Age: 64 Year
  Sex: Male
  Weight: 74.8 kg

DRUGS (1)
  1. MEGACE ES [Suspect]
     Indication: WEIGHT DECREASED
     Dosage: 5 ML DAILY PO
     Route: 048
     Dates: start: 20070701, end: 20090215

REACTIONS (20)
  - ADRENAL INSUFFICIENCY [None]
  - ANOREXIA [None]
  - ASTHENIA [None]
  - BACK PAIN [None]
  - BLOOD TESTOSTERONE INCREASED [None]
  - CHEST X-RAY ABNORMAL [None]
  - CHOKING [None]
  - DYSPHAGIA [None]
  - DYSPNOEA EXERTIONAL [None]
  - FATIGUE [None]
  - HYPERTENSION [None]
  - HYPOMAGNESAEMIA [None]
  - IMPAIRED WORK ABILITY [None]
  - NECK PAIN [None]
  - PULMONARY EMBOLISM [None]
  - RENAL FAILURE ACUTE [None]
  - TACHYCARDIA [None]
  - VITAMIN D DEFICIENCY [None]
  - WEIGHT DECREASED [None]
  - WEIGHT INCREASED [None]
